FAERS Safety Report 17715753 (Version 5)
Quarter: 2025Q3

REPORT INFORMATION
  Report Type: Report from Study
  Country: EU (occurrence: EU)
  Receive Date: 20200427
  Receipt Date: 20250802
  Transmission Date: 20251021
  Serious: Yes (Death, Hospitalization, Other)
  Sender: AUROBINDO
  Company Number: EU-SA-2020SA099420

PATIENT

DRUGS (4)
  1. AZITHROMYCIN [Suspect]
     Active Substance: AZITHROMYCIN
     Indication: COVID-19
     Route: 065
  2. PLAQUENIL [Suspect]
     Active Substance: HYDROXYCHLOROQUINE SULFATE
     Indication: Coronavirus infection
     Route: 065
  3. HYDROXYCHLOROQUINE SULFATE [Suspect]
     Active Substance: HYDROXYCHLOROQUINE SULFATE
     Indication: Product use in unapproved indication
     Route: 065
  4. HYDROXYCHLOROQUINE SULFATE [Suspect]
     Active Substance: HYDROXYCHLOROQUINE SULFATE
     Indication: COVID-19

REACTIONS (6)
  - Cardiac disorder [Fatal]
  - Loss of consciousness [Unknown]
  - Ventricular arrhythmia [Unknown]
  - Electrocardiogram QT prolonged [Unknown]
  - Discomfort [Unknown]
  - Off label use [Unknown]
